FAERS Safety Report 4980939-9 (Version None)
Quarter: 2006Q2

REPORT INFORMATION
  Report Type: 
  Country: None (occurrence: None)
  Receive Date: 20060418
  Receipt Date: 20060406
  Transmission Date: 20061013
  Serious: Yes (Hospitalization)
  Sender: FDA-Public Use
  Company Number: US-INTERMUNE-214256

PATIENT
  Age: 38 Year
  Sex: Female

DRUGS (9)
  1. INTERFERON ALFACON-1 (15 UG) [Suspect]
     Indication: HEPATITIS C
     Dosage: 15 UG; QD; SC
     Route: 058
     Dates: start: 20051012
  2. MORPHINE SULFATE [Concomitant]
  3. SKELAXIN [Concomitant]
  4. OXCARBAZEPINE [Concomitant]
  5. FIORICET [Concomitant]
  6. NICOTINE [Concomitant]
  7. PAMINE [Concomitant]
  8. ZOLOFT [Concomitant]
  9. AMBIEN [Concomitant]

REACTIONS (37)
  - ABDOMINAL PAIN UPPER [None]
  - ARTHRALGIA [None]
  - BACK PAIN [None]
  - BONE PAIN [None]
  - BURNING SENSATION [None]
  - CHILLS [None]
  - DECREASED ACTIVITY [None]
  - DEPRESSION [None]
  - DIARRHOEA [None]
  - DISCOMFORT [None]
  - DISEASE RECURRENCE [None]
  - DIZZINESS [None]
  - DRUG INEFFECTIVE [None]
  - DYSPNOEA [None]
  - FACE OEDEMA [None]
  - FATIGUE [None]
  - GASTRITIS [None]
  - GASTROINTESTINAL DISORDER [None]
  - HEADACHE [None]
  - HYPOTRICHOSIS [None]
  - INJECTION SITE DISCOLOURATION [None]
  - INJECTION SITE ERYTHEMA [None]
  - INJECTION SITE PAIN [None]
  - INJECTION SITE RASH [None]
  - INSOMNIA [None]
  - LACRIMATION INCREASED [None]
  - LOCALISED OEDEMA [None]
  - MYALGIA [None]
  - NASAL CONGESTION [None]
  - OCULAR HYPERAEMIA [None]
  - PAIN IN EXTREMITY [None]
  - PAIN OF SKIN [None]
  - PERIORBITAL OEDEMA [None]
  - PHOTOPHOBIA [None]
  - PYREXIA [None]
  - VOMITING [None]
  - WEIGHT DECREASED [None]
